FAERS Safety Report 22060928 (Version 5)
Quarter: 2023Q2

REPORT INFORMATION
  Report Type: Spontaneous
  Country: FR (occurrence: FR)
  Receive Date: 20230303
  Receipt Date: 20230503
  Transmission Date: 20230721
  Serious: Yes (Hospitalization, Other)
  Sender: FDA-Public Use
  Company Number: FR-ASTELLAS-2023US005799

PATIENT
  Age: 64 Year
  Sex: Female

DRUGS (8)
  1. CARBOPLATIN [Suspect]
     Active Substance: CARBOPLATIN
     Indication: Transitional cell carcinoma metastatic
     Dosage: 1ST CYCLE
     Route: 065
  2. CARBOPLATIN [Suspect]
     Active Substance: CARBOPLATIN
     Dosage: AUC3, EVERY 3 WEEKS (WITHOUT ANY DAY 8 DOSE) (2ND CYCLE)
     Route: 065
     Dates: start: 202103, end: 202107
  3. CARBOPLATIN [Suspect]
     Active Substance: CARBOPLATIN
     Dosage: 3RD CYCLE
     Route: 065
     Dates: start: 202207, end: 202208
  4. GEMCITABINE HYDROCHLORIDE [Suspect]
     Active Substance: GEMCITABINE HYDROCHLORIDE
     Indication: Transitional cell carcinoma metastatic
     Dosage: 1ST CYCLE
     Route: 065
  5. GEMCITABINE HYDROCHLORIDE [Suspect]
     Active Substance: GEMCITABINE HYDROCHLORIDE
     Dosage: 750 MG/M2 EVERY 3 WEEKS (WITHOUT ANY DAY 8 DOSE) (2ND CYCLE)
     Route: 065
     Dates: start: 202103, end: 202107
  6. GEMCITABINE HYDROCHLORIDE [Suspect]
     Active Substance: GEMCITABINE HYDROCHLORIDE
     Dosage: 3RD CYCLE
     Route: 065
     Dates: start: 202207, end: 202208
  7. TACROLIMUS [Suspect]
     Active Substance: TACROLIMUS
     Dosage: UNK
  8. TACROLIMUS [Suspect]
     Active Substance: TACROLIMUS
     Dosage: UNK
     Route: 065

REACTIONS (8)
  - Renal graft infection [Recovered/Resolved]
  - Sepsis [Recovered/Resolved]
  - Septic shock [Unknown]
  - Thrombocytopenia [Unknown]
  - Asthenia [Unknown]
  - Rash [Recovering/Resolving]
  - Neoplasm progression [Unknown]
  - Off label use [Unknown]

NARRATIVE: CASE EVENT DATE: 20180501
